FAERS Safety Report 5523247-X (Version None)
Quarter: 2007Q4

REPORT INFORMATION
  Report Type: 
  Country: None (occurrence: None)
  Receive Date: 20071121
  Receipt Date: 20071113
  Transmission Date: 20080405
  Serious: Yes (Other)
  Sender: FDA-Public Use
  Company Number: US-PURDUE-USA_2007_0029038

PATIENT
  Sex: Female
  Weight: 79 kg

DRUGS (2)
  1. OXYCONTIN [Suspect]
     Indication: HEADACHE
     Dosage: 40 MG, PRN
  2. HUMULIN R [Concomitant]
     Indication: DIABETES MELLITUS
     Dosage: 2 INJ, DAILY

REACTIONS (3)
  - DEPRESSION [None]
  - DRUG DEPENDENCE [None]
  - SUICIDAL IDEATION [None]
